FAERS Safety Report 4984830-3 (Version None)
Quarter: 2006Q2

REPORT INFORMATION
  Report Type: 
  Country: None (occurrence: None)
  Receive Date: 20060427
  Receipt Date: 20060111
  Transmission Date: 20061013
  Serious: Yes (Other)
  Sender: FDA-Public Use
  Company Number: US-AVENTIS-200610675US

PATIENT
  Sex: Male

DRUGS (14)
  1. LANTUS [Suspect]
     Indication: DIABETES MELLITUS NON-INSULIN-DEPENDENT
     Dosage: DOSE UNIT: UNITS
  2. LANTUS [Suspect]
     Dosage: DOSE UNIT: UNITS
  3. LANTUS [Suspect]
  4. OPTICLIK (INSULIN INJECTION PEN) [Suspect]
     Indication: DIABETES MELLITUS NON-INSULIN-DEPENDENT
  5. COUMADIN [Concomitant]
     Indication: ATRIAL FIBRILLATION
     Dosage: DOSE: UNK
  6. ACTOS [Concomitant]
     Dosage: DOSE: UNK
  7. METFORMIN [Concomitant]
     Dosage: DOSE: UNK
  8. LISINOPRIL [Concomitant]
     Dosage: DOSE: UNK
  9. NOVOLOG [Concomitant]
     Dosage: DOSE: UNK
  10. SINGULAIR [Concomitant]
     Dosage: DOSE: UNK
  11. LIPITOR [Concomitant]
     Dosage: DOSE: UNK
  12. HUMALOG [Concomitant]
     Dosage: DOSE: UNK, THREE TIMES A DAY WITH MEALS
  13. LANOXIN [Concomitant]
     Dosage: DOSE: UNK
  14. CELEBREX [Concomitant]
     Dosage: DOSE: UNK

REACTIONS (5)
  - BLOOD GLUCOSE DECREASED [None]
  - BLOOD GLUCOSE INCREASED [None]
  - INJECTION SITE HAEMORRHAGE [None]
  - INJECTION SITE MASS [None]
  - MACULAR DEGENERATION [None]
